FAERS Safety Report 23289561 (Version 2)
Quarter: 2024Q1

REPORT INFORMATION
  Report Type: Spontaneous
  Country: BR (occurrence: BR)
  Receive Date: 20231212
  Receipt Date: 20240117
  Transmission Date: 20240409
  Serious: Yes (Other)
  Sender: FDA-Public Use
  Company Number: BR-WOODWARD-2023-BR-000094

PATIENT
  Sex: Male

DRUGS (2)
  1. DUTASTERIDE\TAMSULOSIN HYDROCHLORIDE [Suspect]
     Active Substance: DUTASTERIDE\TAMSULOSIN HYDROCHLORIDE
     Indication: Prostatitis
     Dosage: UNK, 0.5MG0.4MG X30.MSG
     Route: 065
  2. DOXAZOSIN MESYLATE [Concomitant]
     Active Substance: DOXAZOSIN MESYLATE
     Dosage: UNKNOWN
     Route: 065

REACTIONS (6)
  - Urinary retention [Unknown]
  - Urine output decreased [Unknown]
  - Prostatitis [Unknown]
  - Condition aggravated [Unknown]
  - Suspected counterfeit product [Unknown]
  - Product complaint [Unknown]

NARRATIVE: CASE EVENT DATE: 20230101
